FAERS Safety Report 20037431 (Version 1)
Quarter: 2021Q4

REPORT INFORMATION
  Report Type: Spontaneous
  Country: US (occurrence: US)
  Receive Date: 20211105
  Receipt Date: 20211105
  Transmission Date: 20220303
  Serious: Yes (Other)
  Sender: FDA-Public Use
  Company Number: US-SA-SAC20211102000624

PATIENT
  Age: 53 Year
  Sex: Female

DRUGS (21)
  1. DUPIXENT [Suspect]
     Active Substance: DUPILUMAB
     Indication: Dermatitis atopic
     Dosage: 300 MG, QOW
     Route: 058
     Dates: start: 20181107
  2. AMLODIPINE BESYLATE [Concomitant]
     Active Substance: AMLODIPINE BESYLATE
  3. BIOTIN [Concomitant]
     Active Substance: BIOTIN
  4. COMPAZINE [Concomitant]
     Active Substance: PROCHLORPERAZINE MALEATE
  5. DULOXETINE [Concomitant]
     Active Substance: DULOXETINE
  6. EUCRISA [Concomitant]
     Active Substance: CRISABOROLE
     Indication: Dermatitis atopic
  7. IBUPROFEN [Concomitant]
     Active Substance: IBUPROFEN
  8. LISINOPRIL [Concomitant]
     Active Substance: LISINOPRIL
  9. LYRICA [Concomitant]
     Active Substance: PREGABALIN
  10. VITAMIN D3 [Concomitant]
     Active Substance: CHOLECALCIFEROL
  11. PREGABALIN [Concomitant]
     Active Substance: PREGABALIN
  12. GABAPENTIN [Concomitant]
     Active Substance: GABAPENTIN
  13. ATORVASTATIN CALCIUM [Concomitant]
     Active Substance: ATORVASTATIN CALCIUM
  14. LINZESS [Concomitant]
     Active Substance: LINACLOTIDE
  15. PREDNISONE [Concomitant]
     Active Substance: PREDNISONE
     Indication: Psoriatic arthropathy
  16. PREDNISONE [Concomitant]
     Active Substance: PREDNISONE
     Indication: Dermatitis atopic
  17. SILVER SULFADIAZINE [Concomitant]
     Active Substance: SILVER SULFADIAZINE
  18. METHOTREXATE [Concomitant]
     Active Substance: METHOTREXATE
  19. FOLIC ACID [Concomitant]
     Active Substance: FOLIC ACID
  20. LABETALOL [Concomitant]
     Active Substance: LABETALOL\LABETALOL HYDROCHLORIDE
  21. AZITHROMYCIN [Concomitant]
     Active Substance: AZITHROMYCIN

REACTIONS (4)
  - Psoriatic arthropathy [Recovering/Resolving]
  - Arthralgia [Recovering/Resolving]
  - Joint swelling [Recovering/Resolving]
  - Product dose omission issue [Unknown]

NARRATIVE: CASE EVENT DATE: 20210901
